FAERS Safety Report 6596660-X (Version None)
Quarter: 2010Q1

REPORT INFORMATION
  Report Type: 
  Country: None (occurrence: None)
  Receive Date: 20100223
  Receipt Date: 20100212
  Transmission Date: 20100710
  Serious: Yes (Hospitalization, Other)
  Sender: FDA-Public Use
  Company Number: US-BAYER-201013675NA

PATIENT
  Age: 54 Year
  Sex: Male

DRUGS (7)
  1. AVELOX [Suspect]
     Indication: SINUSITIS
     Dosage: TOTAL DAILY DOSE: 400 MG  UNIT DOSE: 400 MG
     Route: 048
     Dates: start: 20091110
  2. FLOMAX [Concomitant]
     Route: 065
  3. FLONASE [Concomitant]
     Route: 065
  4. SINGULAIR [Concomitant]
     Route: 065
  5. ASTEPRO [Concomitant]
     Route: 065
  6. CLARITIN-D [Concomitant]
     Route: 065
  7. SINGULAIR [Concomitant]
     Route: 065

REACTIONS (9)
  - ANAPHYLACTIC REACTION [None]
  - DISCOMFORT [None]
  - FEELING HOT [None]
  - NAUSEA [None]
  - PAIN [None]
  - PERIPHERAL COLDNESS [None]
  - PYREXIA [None]
  - RASH [None]
  - VOMITING [None]
